FAERS Safety Report 7439840-3 (Version None)
Quarter: 2011Q2

REPORT INFORMATION
  Report Type: 
  Country: None (occurrence: None)
  Receive Date: 20110427
  Receipt Date: 20100326
  Transmission Date: 20111010
  Serious: No
  Sender: FDA-Public Use
  Company Number: US-MYLANLABS-2010S1005270

PATIENT
  Age: 80 Year
  Sex: Female

DRUGS (4)
  1. BUMEX [Concomitant]
  2. ENALAPRIL [Concomitant]
  3. DILTIAZEM HCL [Suspect]
     Indication: BLOOD PRESSURE
     Route: 048
     Dates: start: 20100316
  4. INSPRA /01362602/ [Concomitant]

REACTIONS (3)
  - TREMOR [None]
  - DRUG INEFFECTIVE [None]
  - BLOOD PRESSURE INCREASED [None]
